FAERS Safety Report 7257786-0 (Version None)
Quarter: 2011Q1

REPORT INFORMATION
  Report Type: 
  Country: None (occurrence: None)
  Receive Date: 20110129
  Receipt Date: 20100511
  Transmission Date: 20110831
  Serious: No
  Sender: FDA-Public Use
  Company Number: US-ABBOTT-10P-163-0644895-00

PATIENT
  Sex: Male
  Weight: 59.02 kg

DRUGS (6)
  1. HUMIRA [Suspect]
     Indication: CROHN'S DISEASE
     Route: 058
     Dates: start: 20080115
  2. FLEXERIL [Concomitant]
     Indication: MUSCLE RELAXANT THERAPY
  3. HYDROCODONE [Concomitant]
     Indication: FAECAL INCONTINENCE
  4. MORPHINE [Concomitant]
     Indication: GASTROINTESTINAL DISORDER
     Route: 060
  5. PHENERGAN [Concomitant]
     Indication: NAUSEA
  6. LEVSIN [Concomitant]
     Indication: ABDOMINAL RIGIDITY

REACTIONS (2)
  - MUSCLE ATROPHY [None]
  - CYST [None]
